FAERS Safety Report 6086076-7 (Version None)
Quarter: 2009Q1

REPORT INFORMATION
  Report Type: 
  Country: None (occurrence: None)
  Receive Date: 20090220
  Receipt Date: 20090212
  Transmission Date: 20090719
  Serious: Yes (Hospitalization)
  Sender: FDA-Public Use
  Company Number: FR-PURDUE-GBR_2009_0004829

PATIENT
  Age: 86 Year
  Sex: Female

DRUGS (12)
  1. OXYCONTIN [Suspect]
     Indication: PAIN
     Dosage: 10 MG, UNK
     Route: 048
     Dates: end: 20081104
  2. ALDACTONE [Suspect]
     Indication: HYPERTENSION
     Dosage: 25 MG, 1 UNIT
     Route: 048
     Dates: end: 20081104
  3. CERIS [Suspect]
     Indication: MICTURITION URGENCY
     Dosage: 20 MG, 1 UNIT
     Route: 048
     Dates: end: 20081104
  4. STABLON                            /00956301/ [Suspect]
     Indication: DEPRESSION
     Dosage: 12.5 MG, UNK
     Route: 048
     Dates: end: 20081104
  5. TRIATEC COMP. [Suspect]
     Indication: HYPERTENSION
     Dosage: UNK, DAILY
     Route: 048
     Dates: end: 20081104
  6. LYRICA [Suspect]
     Indication: PAIN
     Dosage: 25 MG, 1 UNIT
     Route: 048
     Dates: end: 20081104
  7. COUMADIN [Suspect]
     Indication: CARDIAC FAILURE
     Dosage: 2 MG, 1 UNIT
     Route: 048
     Dates: end: 20080101
  8. LEVOTHYROXINE                      /00068002/ [Concomitant]
     Indication: HYPOTHYROIDISM
     Dosage: 75 MCG, DAILY
     Route: 065
  9. LASIX [Concomitant]
     Indication: OEDEMA PERIPHERAL
     Dosage: 40 MG, DAILY
     Route: 048
     Dates: end: 20081104
  10. BISOPROLOL FUMARATE [Concomitant]
     Indication: HYPERTENSION
     Dosage: 1.25 MG, DAILY
     Route: 048
  11. CORTANCYL [Concomitant]
     Indication: LYMPHOMA
     Route: 048
  12. INEXIUM                            /01479302/ [Concomitant]
     Indication: DRUG USE FOR UNKNOWN INDICATION
     Dosage: 20 MG, DAILY

REACTIONS (2)
  - CHOLESTASIS [None]
  - CYTOLYTIC HEPATITIS [None]
